FAERS Safety Report 15802833 (Version 14)
Quarter: 2019Q4

REPORT INFORMATION
  Report Type: Report from Study
  Country: BR (occurrence: BR)
  Receive Date: 20190109
  Receipt Date: 20191206
  Transmission Date: 20200122
  Serious: Yes (Hospitalization, Other)
  Sender: FDA-Public Use
  Company Number: BR-JNJFOC-20190109202

PATIENT
  Age: 65 Year
  Sex: Female
  Weight: 43 kg

DRUGS (8)
  1. SIMVASTATIN. [Concomitant]
     Active Substance: SIMVASTATIN
     Route: 065
  2. SARCOL [Concomitant]
     Indication: HEPATIC CIRRHOSIS
     Route: 065
     Dates: start: 2016
  3. ATENOLOL. [Concomitant]
     Active Substance: ATENOLOL
     Route: 065
  4. METFORMIN [Concomitant]
     Active Substance: METFORMIN HYDROCHLORIDE
     Indication: DIABETES MELLITUS
     Dosage: 1 TABLET OF METFORMIN 500 MG AT NIGHT
     Route: 048
  5. STELARA [Suspect]
     Active Substance: USTEKINUMAB
     Indication: CROHN^S DISEASE
     Route: 042
     Dates: start: 20181211, end: 201812
  6. STELARA [Suspect]
     Active Substance: USTEKINUMAB
     Route: 042
     Dates: start: 20190809
  7. STELARA [Suspect]
     Active Substance: USTEKINUMAB
     Route: 058
     Dates: end: 20190206
  8. MESALAZINE [Concomitant]
     Active Substance: MESALAMINE
     Route: 065

REACTIONS (14)
  - Abscess intestinal [Unknown]
  - Cholecystitis infective [Recovered/Resolved]
  - Intestinal perforation [Unknown]
  - Fall [Unknown]
  - Fistula [Not Recovered/Not Resolved]
  - Urinary tract infection [Recovered/Resolved]
  - Kidney infection [Unknown]
  - Hypotension [Unknown]
  - Crohn^s disease [Not Recovered/Not Resolved]
  - Cholelithiasis [Unknown]
  - Weight decreased [Unknown]
  - Appendicitis [Recovered/Resolved]
  - Infection [Unknown]
  - Liver abscess [Unknown]

NARRATIVE: CASE EVENT DATE: 20190101
